FAERS Safety Report 20738112 (Version 1)
Quarter: 2022Q2

REPORT INFORMATION
  Report Type: Spontaneous
  Country: FR (occurrence: FR)
  Receive Date: 20220422
  Receipt Date: 20220422
  Transmission Date: 20220721
  Serious: Yes (Hospitalization)
  Sender: FDA-Public Use
  Company Number: None

PATIENT
  Age: 52 Year
  Sex: Female

DRUGS (4)
  1. QUETIAPINE [Suspect]
     Active Substance: QUETIAPINE
     Indication: Bipolar disorder
     Dosage: UNIT DOSE 300MG,FREQUENCY TIME 1 DAYS,THERAPY START DATE : ASKU
     Route: 048
  2. VENLAFAXINE [Suspect]
     Active Substance: VENLAFAXINE HYDROCHLORIDE
     Indication: Bipolar disorder
     Dosage: UNIT DOSE 150MG,FREQUENCY TIME 1 DAYS,THERAPY START DATE : ASKU
     Route: 048
  3. LAMOTRIGINE [Suspect]
     Active Substance: LAMOTRIGINE
     Indication: Bipolar disorder
     Dosage: UNIT DOSE 200MG,FREQUENCY TIME 1 DAYS,THERAPY START DATE : ASKU
     Route: 048
  4. ASTRAZENECA COVID-19 VACCINE [Suspect]
     Active Substance: AZD-1222
     Indication: COVID-19 immunisation
     Dosage: UNIT DOSE 1 DF,FREQUENCY TIME 1 TOTAL,DURATION 1 DAYS
     Route: 030
     Dates: start: 20210311, end: 20210311

REACTIONS (1)
  - Pulmonary embolism [Recovering/Resolving]

NARRATIVE: CASE EVENT DATE: 20210415
